FAERS Safety Report 12630631 (Version 1)
Quarter: 2016Q3

REPORT INFORMATION
  Report Type: Spontaneous
  Country: US (occurrence: US)
  Receive Date: 20160808
  Receipt Date: 20160808
  Transmission Date: 20161109
  Serious: Yes (Other)
  Sender: FDA-Public Use
  Company Number: US-PFIZER INC-2016374391

PATIENT
  Age: 42 Year
  Sex: Female

DRUGS (4)
  1. ZIPRASIDONE HCL [Suspect]
     Active Substance: ZIPRASIDONE HYDROCHLORIDE
     Indication: PSYCHOTIC DISORDER
     Dosage: 80 MG, 1X/DAY
     Route: 048
     Dates: start: 2004
  2. CLONAZEPAM. [Concomitant]
     Active Substance: CLONAZEPAM
     Indication: ANXIETY
     Dosage: 1 MG, 3X/DAY
     Route: 048
  3. ACYCLOVIR /00587301/ [Concomitant]
     Active Substance: ACYCLOVIR
     Indication: HERPES VIRUS INFECTION
     Dosage: 400 MG, 2X/DAY
     Route: 048
     Dates: start: 2004
  4. GEODON [Suspect]
     Active Substance: ZIPRASIDONE HYDROCHLORIDE\ZIPRASIDONE MESYLATE
     Indication: PSYCHOTIC DISORDER
     Dosage: UNK

REACTIONS (8)
  - Headache [Unknown]
  - Microangiopathy [Unknown]
  - Thinking abnormal [Not Recovered/Not Resolved]
  - Dementia [Unknown]
  - Memory impairment [Not Recovered/Not Resolved]
  - Product use issue [Unknown]
  - Cerebrovascular accident [Unknown]
  - Insomnia [Not Recovered/Not Resolved]

NARRATIVE: CASE EVENT DATE: 2004
